FAERS Safety Report 11874321 (Version 1)
Quarter: 2015Q4

REPORT INFORMATION
  Report Type: Spontaneous
  Country: US (occurrence: US)
  Receive Date: 20151229
  Receipt Date: 20151229
  Transmission Date: 20160305
  Serious: No
  Sender: FDA-Public Use
  Company Number: US-BRISTOL-MYERS SQUIBB COMPANY-BMS-2015-088896

PATIENT
  Age: 62 Year
  Sex: Female

DRUGS (6)
  1. VITAMIN D                          /00107901/ [Concomitant]
     Active Substance: ERGOCALCIFEROL
     Indication: SUPPLEMENTATION THERAPY
     Dosage: 1 UNK, UNK
     Route: 048
  2. MEGACE [Suspect]
     Active Substance: MEGESTROL ACETATE
     Indication: BLOOD OESTROGEN
     Dosage: 40 MG, QD
     Route: 048
     Dates: start: 201508
  3. LETROZOLE. [Concomitant]
     Active Substance: LETROZOLE
     Indication: BLOOD OESTROGEN
     Dosage: 2.5 MG, UNK
     Route: 048
     Dates: start: 201508
  4. LUPRON [Suspect]
     Active Substance: LEUPROLIDE ACETATE
     Indication: UTERINE LEIOMYOMA
     Dosage: 3.75 MG, QMO
     Route: 065
     Dates: start: 20150831
  5. VITAMIN B COMPLEX [Concomitant]
     Active Substance: CYANOCOBALAMIN\DEXPANTHENOL\NIACINAMIDE\PYRIDOXINE HYDROCHLORIDE\RIBOFLAVIN 5^-PHOSPHATE SODIUM\THIAMINE HYDROCHLORIDE\VITAMIN B COMPLEX
     Indication: SUPPLEMENTATION THERAPY
     Dosage: 1 UNK, QD
     Route: 048
  6. VITAMIN C [Concomitant]
     Active Substance: ASCORBIC ACID
     Indication: SUPPLEMENTATION THERAPY
     Dosage: 1 UNK, QD
     Route: 048

REACTIONS (14)
  - Eructation [Unknown]
  - Hypomagnesaemia [Unknown]
  - Asthenia [Unknown]
  - Uterine leiomyoma [Unknown]
  - Pelvic pain [Unknown]
  - Dyspepsia [Unknown]
  - Fatigue [Unknown]
  - Sleep disorder [Unknown]
  - Weight increased [Unknown]
  - Eating disorder [Unknown]
  - Abdominal distension [Unknown]
  - Dyspnoea [Unknown]
  - Fatigue [Unknown]
  - Back pain [Unknown]

NARRATIVE: CASE EVENT DATE: 201508
